FAERS Safety Report 6240327-4 (Version None)
Quarter: 2009Q2

REPORT INFORMATION
  Report Type: 
  Country: None (occurrence: None)
  Receive Date: 20090623
  Receipt Date: 20080728
  Transmission Date: 20091009
  Serious: No
  Sender: FDA-Public Use
  Company Number: US-ASTRAZENECA-2008UW14642

PATIENT
  Age: 62 Year
  Sex: Female
  Weight: 70.3 kg

DRUGS (4)
  1. PULMICORT FLEXHALER [Suspect]
     Route: 055
  2. SEREVENT [Concomitant]
  3. FLONASE [Concomitant]
  4. NEXIUM [Concomitant]
     Route: 048

REACTIONS (4)
  - ANXIETY [None]
  - DIZZINESS [None]
  - HEART RATE INCREASED [None]
  - NAUSEA [None]
